FAERS Safety Report 6111482-1 (Version None)
Quarter: 2009Q1

REPORT INFORMATION
  Report Type: 
  Country: None (occurrence: None)
  Receive Date: 20090311
  Receipt Date: 20090227
  Transmission Date: 20090719
  Serious: Yes (Hospitalization)
  Sender: FDA-Public Use
  Company Number: GB-ELI_LILLY_AND_COMPANY-GB200807003801

PATIENT
  Sex: Male
  Weight: 64 kg

DRUGS (3)
  1. HUMALOG [Suspect]
     Indication: TYPE 1 DIABETES MELLITUS
     Dosage: 9 IU, 2/D
     Route: 058
     Dates: start: 20010101, end: 20080701
  2. LANTUS [Concomitant]
     Indication: DIABETES MELLITUS
     Dosage: 12 IU, UNKNOWN
     Route: 058
     Dates: start: 20040101, end: 20080701
  3. ASPIRIN [Concomitant]
     Dosage: 75 MG, UNKNOWN
     Route: 048

REACTIONS (12)
  - AMNESIA [None]
  - ARTHRALGIA [None]
  - ASTHENIA [None]
  - FALL [None]
  - FATIGUE [None]
  - FOOT FRACTURE [None]
  - HYPOGLYCAEMIA [None]
  - HYPOTENSION [None]
  - MALAISE [None]
  - MUSCLE FATIGUE [None]
  - MUSCLE SPASMS [None]
  - PAIN [None]
